FAERS Safety Report 7231055-7 (Version None)
Quarter: 2011Q1

REPORT INFORMATION
  Report Type: 
  Country: None (occurrence: None)
  Receive Date: 20110118
  Receipt Date: 20110104
  Transmission Date: 20110831
  Serious: Yes (Death, Other)
  Sender: FDA-Public Use
  Company Number: US-ROCHE-752296

PATIENT
  Sex: Female

DRUGS (6)
  1. TARCEVA [Suspect]
     Indication: LUNG CANCER METASTATIC
     Route: 048
     Dates: end: 20100429
  2. TAXOL [Concomitant]
  3. GEMZAR [Concomitant]
     Dates: start: 20100429, end: 20100909
  4. CARBOPLATIN [Concomitant]
  5. AVASTIN [Suspect]
     Indication: LUNG CANCER METASTATIC
     Route: 065
     Dates: start: 20081219, end: 20100909
  6. ZOMETA [Concomitant]

REACTIONS (4)
  - DYSPNOEA [None]
  - ANAEMIA [None]
  - FATIGUE [None]
  - DEATH [None]
